FAERS Safety Report 17305656 (Version 2)
Quarter: 2020Q1

REPORT INFORMATION
  Report Type: Report from Study
  Country: GB (occurrence: GB)
  Receive Date: 20200123
  Receipt Date: 20200130
  Transmission Date: 20200409
  Serious: Yes (Hospitalization, Disabling)
  Sender: FDA-Public Use
  Company Number: GB-PFIZER INC-2020024047

PATIENT
  Age: 18 Year
  Sex: Female

DRUGS (10)
  1. MIDAZOLAM HYDROCHLORIDE. [Suspect]
     Active Substance: MIDAZOLAM HYDROCHLORIDE
     Indication: STATUS EPILEPTICUS
     Dosage: UP TO 20MG/HR
     Route: 065
  2. PROPOFOL. [Suspect]
     Active Substance: PROPOFOL
     Indication: STATUS EPILEPTICUS
     Dosage: UNK
     Route: 065
  3. PHENOBARBITONE [PHENOBARBITAL] [Concomitant]
     Active Substance: PHENOBARBITAL
     Indication: STATUS EPILEPTICUS
     Dosage: UNK
     Route: 065
  4. PHENYTOIN. [Concomitant]
     Active Substance: PHENYTOIN
     Indication: STATUS EPILEPTICUS
     Dosage: UNK
     Route: 065
  5. LACOSAMIDE. [Concomitant]
     Active Substance: LACOSAMIDE
     Indication: STATUS EPILEPTICUS
     Dosage: UNK
     Route: 065
  6. THIOPENTAL SODIUM. [Suspect]
     Active Substance: THIOPENTAL SODIUM
     Indication: STATUS EPILEPTICUS
     Dosage: UP TO 7MG/KG/HR
     Route: 042
  7. KETAMINE HCL [Suspect]
     Active Substance: KETAMINE HYDROCHLORIDE
     Indication: STATUS EPILEPTICUS
     Dosage: 2 MG/KG,(2 MG/KG/HR)
     Route: 065
  8. METHYLPREDNISOLONE. [Concomitant]
     Active Substance: METHYLPREDNISOLONE
     Indication: STATUS EPILEPTICUS
     Dosage: UNK (UNKNOWN)
     Route: 042
  9. FENTANYL. [Suspect]
     Active Substance: FENTANYL
     Indication: STATUS EPILEPTICUS
     Dosage: 200 MG/KG,(200 MG/KG/H)
     Route: 065
  10. LEVETIRACETAM. [Concomitant]
     Active Substance: LEVETIRACETAM
     Indication: STATUS EPILEPTICUS
     Dosage: UNK
     Route: 065

REACTIONS (14)
  - Hypoglycaemia [Unknown]
  - Intensive care unit delirium [Unknown]
  - Euthyroid sick syndrome [Unknown]
  - Partial seizures [Unknown]
  - Hypokalaemia [Unknown]
  - Cognitive disorder [Unknown]
  - Memory impairment [Unknown]
  - Liver function test abnormal [Unknown]
  - Visual acuity reduced [Unknown]
  - Ventricular hypokinesia [Unknown]
  - Intensive care unit acquired weakness [Unknown]
  - Pelvic venous thrombosis [Unknown]
  - Optic neuropathy [Unknown]
  - Infection [Unknown]
